FAERS Safety Report 8508646-6 (Version None)
Quarter: 2012Q3

REPORT INFORMATION
  Report Type: 
  Country: None (occurrence: None)
  Receive Date: 20120713
  Receipt Date: 20120629
  Transmission Date: 20120928
  Serious: Yes (Hospitalization)
  Sender: FDA-Public Use
  Company Number: HU-MYLANLABS-2012S1013596

PATIENT
  Age: 47 Year
  Sex: Male

DRUGS (2)
  1. ALLOPURINOL [Interacting]
     Indication: HYPERURICAEMIA
     Dosage: 300MG
     Route: 065
  2. HYDROCHLOROTHIAZIDE [Suspect]
     Route: 065

REACTIONS (2)
  - DRUG RASH WITH EOSINOPHILIA AND SYSTEMIC SYMPTOMS [None]
  - DRUG INTERACTION [None]
